FAERS Safety Report 23570610 (Version 1)
Quarter: 2024Q1

REPORT INFORMATION
  Report Type: Spontaneous
  Country: US (occurrence: None)
  Receive Date: 20240226
  Receipt Date: 20240226
  Transmission Date: 20240409
  Serious: Yes (Hospitalization)
  Sender: FDA-Public Use
  Company Number: None

PATIENT
  Sex: Female

DRUGS (8)
  1. REPATHA [Suspect]
     Active Substance: EVOLOCUMAB
     Indication: Type V hyperlipidaemia
     Dosage: FREQ: INJECT 420 MG INTO FATTY TISSUE UNDER SKIN EVERY 4 WEEKS
     Route: 058
     Dates: start: 20200716
  2. CITALOPRAM [Concomitant]
     Active Substance: CITALOPRAM HYDROBROMIDE
  3. DICLOFENAC [Concomitant]
     Active Substance: DICLOFENAC
  4. DULOXETINE [Concomitant]
     Active Substance: DULOXETINE
  5. EZETIMIBE [Concomitant]
     Active Substance: EZETIMIBE
  6. GABAPENTIN [Concomitant]
     Active Substance: GABAPENTIN
  7. PANTOPRAZOLE [Concomitant]
     Active Substance: PANTOPRAZOLE
  8. SERTRALINE [Concomitant]
     Active Substance: SERTRALINE HYDROCHLORIDE

REACTIONS (1)
  - Hospitalisation [None]
